FAERS Safety Report 22382480 (Version 3)
Quarter: 2023Q2

REPORT INFORMATION
  Report Type: Spontaneous
  Country: GB (occurrence: GB)
  Receive Date: 20230530
  Receipt Date: 20230612
  Transmission Date: 20230722
  Serious: Yes (Hospitalization, Other)
  Sender: FDA-Public Use
  Company Number: GB-GSKCCFEMEA-Case-01736815_AE-71136

PATIENT

DRUGS (5)
  1. ZEJULA [Suspect]
     Active Substance: NIRAPARIB
     Indication: Ovarian cancer
     Dosage: 200 MG
     Route: 048
     Dates: start: 20230202, end: 20230416
  2. LANSOPRAZOLE [Concomitant]
     Active Substance: LANSOPRAZOLE
     Indication: Product used for unknown indication
     Dosage: 30 MG
  3. SERTRALINE [Concomitant]
     Active Substance: SERTRALINE HYDROCHLORIDE
     Indication: Product used for unknown indication
     Dosage: 50 MG
  4. ATORVASTATIN [Concomitant]
     Active Substance: ATORVASTATIN
     Indication: Product used for unknown indication
     Dosage: UNK
  5. CLOPIDOGREL [Concomitant]
     Active Substance: CLOPIDOGREL BISULFATE
     Indication: Product used for unknown indication
     Dosage: UNK
     Dates: start: 202305

REACTIONS (11)
  - Dysarthria [Recovering/Resolving]
  - Gait disturbance [Unknown]
  - Transient ischaemic attack [Recovering/Resolving]
  - Blood pressure increased [Unknown]
  - Speech disorder [Recovering/Resolving]
  - Balance disorder [Unknown]
  - Mobility decreased [Unknown]
  - Coordination abnormal [Unknown]
  - Bradykinesia [Unknown]
  - Ataxia [Unknown]
  - Asthenia [Unknown]

NARRATIVE: CASE EVENT DATE: 20230511
